FAERS Safety Report 6649583-1 (Version None)
Quarter: 2010Q1

REPORT INFORMATION
  Report Type: 
  Country: None (occurrence: None)
  Receive Date: 20100324
  Receipt Date: 20100319
  Transmission Date: 20100710
  Serious: Yes (Hospitalization, Disabling)
  Sender: FDA-Public Use
  Company Number: US-MERCK-0907USA04409

PATIENT
  Age: 64 Year
  Sex: Female
  Weight: 83 kg

DRUGS (2)
  1. FOSAMAX [Suspect]
     Indication: OSTEOPENIA
     Route: 048
     Dates: start: 20020101
  2. FOSAMAX [Suspect]
     Route: 048
     Dates: start: 19980401

REACTIONS (23)
  - ADENOMA BENIGN [None]
  - ADVERSE EVENT [None]
  - ASTHENIA [None]
  - BACK DISORDER [None]
  - BACK PAIN [None]
  - FEMUR FRACTURE [None]
  - HAEMATURIA [None]
  - HEPATIC STEATOSIS [None]
  - INSOMNIA [None]
  - INTERVERTEBRAL DISC PROTRUSION [None]
  - MIXED SALIVARY TUMOUR [None]
  - MUSCLE SPASMS [None]
  - NECK PAIN [None]
  - OSTEOARTHRITIS [None]
  - OSTEOPOROSIS [None]
  - PARATHYROID TUMOUR BENIGN [None]
  - POLYMYALGIA RHEUMATICA [None]
  - RADICULITIS LUMBOSACRAL [None]
  - SIALOADENITIS [None]
  - SINUS TACHYCARDIA [None]
  - SUPRAVENTRICULAR EXTRASYSTOLES [None]
  - TYPE 2 DIABETES MELLITUS [None]
  - UPPER RESPIRATORY TRACT INFECTION [None]
